FAERS Safety Report 9719855 (Version 3)
Quarter: 2014Q1

REPORT INFORMATION
  Report Type: Spontaneous
  Country: GB (occurrence: GB)
  Receive Date: 20131128
  Receipt Date: 20140310
  Transmission Date: 20141002
  Serious: Yes (Other)
  Sender: FDA-Public Use
  Company Number: GB-009507513-1311GBR010658

PATIENT
  Sex: Female

DRUGS (11)
  1. ISENTRESS [Suspect]
     Dosage: UNK
     Route: 048
  2. TRUVADA [Concomitant]
  3. FLUCONAZOLE [Concomitant]
  4. LANSOPRAZOLE [Concomitant]
  5. ADCAL-D3 [Concomitant]
  6. LEVOMEPROMAZINE [Concomitant]
  7. PANADOL [Concomitant]
  8. METOCLOPRAMIDE [Concomitant]
  9. NASEPTIN [Concomitant]
  10. CIPROFLOXACIN [Concomitant]
  11. ONDANSETRON HYDROCHLORIDE [Concomitant]

REACTIONS (2)
  - Encephalitis [Unknown]
  - Gastrointestinal tube insertion [Unknown]
